FAERS Safety Report 7646091-6 (Version None)
Quarter: 2011Q3

REPORT INFORMATION
  Report Type: 
  Country: None (occurrence: None)
  Receive Date: 20110801
  Receipt Date: 20110722
  Transmission Date: 20111222
  Serious: Yes (Other)
  Sender: FDA-Public Use
  Company Number: US-BIOGENIDEC-2011BI027372

PATIENT
  Sex: Male

DRUGS (3)
  1. COUMADIN [Concomitant]
     Indication: THROMBOSIS
  2. WARFARIN SODIUM [Concomitant]
     Indication: THROMBOSIS
     Dates: start: 20041201
  3. AVONEX [Suspect]
     Indication: MULTIPLE SCLEROSIS
     Route: 030
     Dates: start: 20091113, end: 20110101

REACTIONS (5)
  - SUBCLAVIAN VEIN THROMBOSIS [None]
  - INFLUENZA LIKE ILLNESS [None]
  - HEADACHE [None]
  - IMPLANTABLE DEFIBRILLATOR REPLACEMENT [None]
  - VOMITING [None]
